FAERS Safety Report 4876808-5 (Version None)
Quarter: 2005Q4

REPORT INFORMATION
  Report Type: 
  Country: None (occurrence: None)
  Receive Date: 20051206
  Receipt Date: 20050826
  Transmission Date: 20060501
  Serious: No
  Sender: FDA-Public Use
  Company Number: USA0508106592

PATIENT
  Age: 67 Year
  Sex: Male
  Weight: 125 kg

DRUGS (16)
  1. CYMBALTA [Suspect]
     Dosage: 30 MG DAY
     Dates: start: 20050825
  2. ACCUZYME [Concomitant]
  3. ASPIRIN [Concomitant]
  4. AUGMENTIN '125' [Concomitant]
  5. MULTI-VITAMIN [Concomitant]
  6. HYDROCHLOROTHIAZIDE [Concomitant]
  7. KENALOG [Concomitant]
  8. LANTUS [Concomitant]
  9. LIPITOR [Concomitant]
  10. MINOCIN (MINOCYCLINE HYDROCHLORIDE) [Concomitant]
  11. NIACINAMIDE [Concomitant]
  12. NIZORAL [Concomitant]
  13. NORVASC [Concomitant]
  14. DILVADENE (SULFADIAZINE SILVER) [Concomitant]
  15. TRENTAL [Concomitant]
  16. VASOTEC [Concomitant]

REACTIONS (3)
  - ACTIVITIES OF DAILY LIVING IMPAIRED [None]
  - FATIGUE [None]
  - NAUSEA [None]
